FAERS Safety Report 13829665 (Version 2)
Quarter: 2017Q3

REPORT INFORMATION
  Report Type: Report from Study
  Country: BR (occurrence: BR)
  Receive Date: 20170803
  Receipt Date: 20170905
  Transmission Date: 20171127
  Serious: Yes (Life-Threatening, Hospitalization, Other)
  Sender: FDA-Public Use
  Company Number: BR-ALEXION PHARMACEUTICALS INC.-A201708578

PATIENT
  Sex: Female

DRUGS (2)
  1. SOLIRIS [Suspect]
     Active Substance: ECULIZUMAB
     Dosage: 1200 MG, Q2W
     Route: 042
     Dates: start: 20100915, end: 20170803
  2. SOLIRIS [Suspect]
     Active Substance: ECULIZUMAB
     Indication: PAROXYSMAL NOCTURNAL HAEMOGLOBINURIA
     Dosage: 600 MG, QW
     Route: 042
     Dates: start: 20100811, end: 20100901

REACTIONS (6)
  - Platelet count decreased [Unknown]
  - Feeding disorder [Unknown]
  - Depressed mood [Unknown]
  - Myelodysplastic syndrome [Not Recovered/Not Resolved]
  - Mucosal inflammation [Unknown]
  - Incorrect dose administered [Recovered/Resolved]
